FAERS Safety Report 24330268 (Version 2)
Quarter: 2024Q4

REPORT INFORMATION
  Report Type: Report from Study
  Country: US (occurrence: US)
  Receive Date: 20240918
  Receipt Date: 20241016
  Transmission Date: 20250115
  Serious: Yes (Other)
  Sender: ABBVIE
  Company Number: US-ABBVIE-5922908

PATIENT
  Sex: Male

DRUGS (1)
  1. HUMIRA [Suspect]
     Active Substance: ADALIMUMAB
     Indication: Psoriatic arthropathy
     Route: 058
     Dates: start: 20220516

REACTIONS (4)
  - Neck mass [Unknown]
  - Staphylococcal infection [Recovered/Resolved]
  - Immunodeficiency [Unknown]
  - Acne [Recovered/Resolved]
